FAERS Safety Report 9426315 (Version 1)
Quarter: 2013Q3

REPORT INFORMATION
  Report Type: Other
  Country: FR (occurrence: FR)
  Receive Date: 20130730
  Receipt Date: 20130730
  Transmission Date: 20140515
  Serious: Yes (Other)
  Sender: FDA-Public Use
  Company Number: FR-BRISTOL-MYERS SQUIBB COMPANY-19130350

PATIENT
  Age: 72 Year
  Sex: Male

DRUGS (1)
  1. WARFARIN SODIUM [Suspect]
     Indication: INTERNATIONAL NORMALISED RATIO FLUCTUATION
     Dates: start: 200803

REACTIONS (1)
  - Skin ulcer [Recovered/Resolved]
